FAERS Safety Report 19515688 (Version 2)
Quarter: 2021Q3

REPORT INFORMATION
  Report Type: Spontaneous
  Country: GB (occurrence: GB)
  Receive Date: 20210710
  Receipt Date: 20210726
  Transmission Date: 20211014
  Serious: Yes (Other)
  Sender: FDA-Public Use
  Company Number: PHHY2019GB024764

PATIENT
  Age: 53 Year
  Sex: Female

DRUGS (12)
  1. DOCETAXEL. [Suspect]
     Active Substance: DOCETAXEL
     Indication: BREAST CANCER
     Dosage: UNK (1 CYCLE PER REGIMEN)
     Route: 042
     Dates: start: 20151204, end: 20151204
  2. TRASTUZUMAB. [Suspect]
     Active Substance: TRASTUZUMAB
     Dosage: 735 MG, Q3W (MAINTENANCE DOSE)
     Route: 042
     Dates: start: 20160203
  3. DENOSUMAB [Suspect]
     Active Substance: DENOSUMAB
     Indication: METASTASES TO BONE
     Dosage: 120 MG, Q3W
     Route: 058
     Dates: start: 20151203
  4. TRASTUZUMAB. [Suspect]
     Active Substance: TRASTUZUMAB
     Indication: BREAST CANCER
     Dosage: 1071 MG, QD (LOADING DOSE 1 CYCLE PER REGIMEN)
     Route: 041
     Dates: start: 20151203, end: 20151203
  5. PERTUZUMAB. [Suspect]
     Active Substance: PERTUZUMAB
     Indication: BREAST CANCER
     Dosage: 840 MG, Q3W (LOADING DOSE, 1 CYCLE PER REGIMEN)
     Route: 042
     Dates: start: 20151203, end: 20151203
  6. DOCETAXEL. [Suspect]
     Active Substance: DOCETAXEL
     Dosage: 90 MG, TIW
     Route: 042
     Dates: start: 20160203
  7. TRASTUZUMAB EMTANSINE [Suspect]
     Active Substance: ADO-TRASTUZUMAB EMTANSINE
     Dosage: 450 MG, Q3W
     Route: 042
     Dates: start: 20160817, end: 20161109
  8. DENOSUMAB [Suspect]
     Active Substance: DENOSUMAB
     Indication: BREAST CANCER
     Dosage: UNK (STRENGTH: 245 (UNIT NOT REPORTED)))
     Route: 065
  9. DOCETAXEL. [Suspect]
     Active Substance: DOCETAXEL
     Dosage: UNK UNK, Q3W (5 CYCLES PER REGIMEN)
     Route: 042
     Dates: start: 20151223, end: 20160113
  10. TRASTUZUMAB. [Suspect]
     Active Substance: TRASTUZUMAB
     Dosage: 819 MG, Q3W (MAINTENANCE DOSE)
     Route: 042
     Dates: start: 20151223, end: 20160113
  11. PERTUZUMAB. [Suspect]
     Active Substance: PERTUZUMAB
     Dosage: 420 MG, Q3W (MAINTAINENCE DOSE)
     Route: 042
     Dates: start: 20151223
  12. TRASTUZUMAB EMTANSINE [Suspect]
     Active Substance: ADO-TRASTUZUMAB EMTANSINE
     Indication: BREAST CANCER
     Dosage: UNK (STRENGTH: 230 UNITED NOT REPORTED)
     Route: 065

REACTIONS (15)
  - Vomiting [Recovered/Resolved]
  - Fatigue [Not Recovered/Not Resolved]
  - Migraine [Recovered/Resolved]
  - Diarrhoea [Recovered/Resolved]
  - Onychomycosis [Unknown]
  - Nail discolouration [Unknown]
  - Depressed mood [Recovered/Resolved]
  - Dyspnoea [Unknown]
  - Spinal pain [Recovered/Resolved]
  - Fatigue [Recovering/Resolving]
  - Vomiting [Recovered/Resolved]
  - Decreased appetite [Unknown]
  - Diabetes mellitus [Not Recovered/Not Resolved]
  - Blood cholesterol increased [Unknown]
  - Cough [Not Recovered/Not Resolved]

NARRATIVE: CASE EVENT DATE: 20151203
